FAERS Safety Report 23795711 (Version 1)
Quarter: 2024Q2

REPORT INFORMATION
  Report Type: Spontaneous
  Country: AU (occurrence: AU)
  Receive Date: 20240429
  Receipt Date: 20240429
  Transmission Date: 20240716
  Serious: Yes (Other)
  Sender: FDA-Public Use
  Company Number: AU-002147023-NVSC2024AU084657

PATIENT
  Age: 67 Year
  Sex: Male

DRUGS (16)
  1. CYCLOSPORINE [Suspect]
     Active Substance: CYCLOSPORINE
     Indication: Graft versus host disease
     Dosage: 200 MG
     Route: 065
  2. CYCLOSPORINE [Suspect]
     Active Substance: CYCLOSPORINE
     Dosage: 400 MG, QD
     Route: 065
     Dates: start: 2023, end: 202303
  3. VENETOCLAX [Suspect]
     Active Substance: VENETOCLAX
     Indication: Acute myeloid leukaemia
     Dosage: UNK
     Route: 065
  4. METHYLPREDNISOLONE [Suspect]
     Active Substance: METHYLPREDNISOLONE
     Indication: Graft versus host disease
     Dosage: 2 MG/KG
     Route: 042
     Dates: start: 2023
  5. METHYLPREDNISOLONE [Suspect]
     Active Substance: METHYLPREDNISOLONE
     Dosage: 1-1.25?MG/KG
     Route: 065
  6. PREDNISOLONE [Suspect]
     Active Substance: PREDNISOLONE
     Indication: Graft versus host disease
     Dosage: 100 MG
     Route: 048
     Dates: start: 202302
  7. PREDNISOLONE [Suspect]
     Active Substance: PREDNISOLONE
     Dosage: 75 MG
     Route: 048
     Dates: start: 202302
  8. PREDNISOLONE [Suspect]
     Active Substance: PREDNISOLONE
     Dosage: 50 MG
     Route: 048
     Dates: start: 202302
  9. PREDNISOLONE [Suspect]
     Active Substance: PREDNISOLONE
     Dosage: 25 MG
     Route: 048
     Dates: start: 202302
  10. PREDNISOLONE [Suspect]
     Active Substance: PREDNISOLONE
     Dosage: 12.5 MG
     Route: 048
     Dates: start: 202303
  11. PREDNISOLONE [Suspect]
     Active Substance: PREDNISOLONE
     Dosage: 10 MG
     Route: 048
     Dates: start: 202303
  12. PREDNISOLONE [Suspect]
     Active Substance: PREDNISOLONE
     Dosage: 5 MG
     Route: 048
     Dates: start: 202303, end: 202303
  13. BUDESONIDE [Suspect]
     Active Substance: BUDESONIDE
     Indication: Graft versus host disease
     Dosage: 3 MG,THRICE DAILY
     Route: 065
  14. BUDESONIDE [Suspect]
     Active Substance: BUDESONIDE
     Dosage: 9 MG, QD
     Route: 065
     Dates: start: 2023, end: 202303
  15. POSACONAZOLE [Suspect]
     Active Substance: POSACONAZOLE
     Indication: Antifungal prophylaxis
     Dosage: 300 MG
     Route: 048
     Dates: start: 2023
  16. VALGANCICLOVIR [Suspect]
     Active Substance: VALGANCICLOVIR
     Indication: Antiviral treatment
     Dosage: UNK
     Route: 065
     Dates: start: 2023

REACTIONS (9)
  - Type 2 diabetes mellitus [Unknown]
  - Myelosuppression [Unknown]
  - Tertiary adrenal insufficiency [Unknown]
  - Cushing^s syndrome [Unknown]
  - Cytomegalovirus infection [Recovered/Resolved]
  - BK virus infection [Unknown]
  - Cystitis [Unknown]
  - Infection reactivation [Unknown]
  - Drug interaction [Unknown]

NARRATIVE: CASE EVENT DATE: 20230101
